FAERS Safety Report 16990127 (Version 2)
Quarter: 2019Q4

REPORT INFORMATION
  Report Type: Report from Study
  Country: US (occurrence: US)
  Receive Date: 20191104
  Receipt Date: 20191128
  Transmission Date: 20200122
  Serious: Yes (Hospitalization)
  Sender: FDA-Public Use
  Company Number: NVSC2019US023659

PATIENT
  Age: 74 Year
  Sex: Male

DRUGS (2)
  1. ENTRESTO [Suspect]
     Active Substance: SACUBITRIL\VALSARTAN
     Indication: CARDIAC FAILURE
     Dosage: UNK
     Route: 048
  2. ENTRESTO [Suspect]
     Active Substance: SACUBITRIL\VALSARTAN
     Dosage: 200 MG (97 MG SACUBITRIL/ 103 MG VALSARTAN), BID
     Route: 048
     Dates: start: 20191111

REACTIONS (4)
  - Dyspnoea [Unknown]
  - Weight increased [Unknown]
  - Blood pressure fluctuation [Unknown]
  - Asthenia [Unknown]

NARRATIVE: CASE EVENT DATE: 20191118
